FAERS Safety Report 24561502 (Version 1)
Quarter: 2024Q4

REPORT INFORMATION
  Report Type: Spontaneous
  Country: US (occurrence: None)
  Receive Date: 20241029
  Receipt Date: 20241029
  Transmission Date: 20250115
  Serious: Yes (Hospitalization)
  Sender: Public
  Company Number: None

PATIENT
  Age: 53 Year
  Sex: Female

DRUGS (11)
  1. DIPHENHYDRAMINE [Suspect]
     Active Substance: DIPHENHYDRAMINE
     Indication: Chronic kidney disease
     Dosage: OTHER QUANTITY : 1-2 CAPSULES;?FREQUENCY : AS NEEDED;?
     Route: 048
     Dates: start: 20241018
  2. ACETAMINOPHEN [Concomitant]
     Active Substance: ACETAMINOPHEN
  3. ARIPIPRAZOLE [Concomitant]
     Active Substance: ARIPIPRAZOLE
  4. BD POSIFLUSH [Concomitant]
  5. BUMETANIDE [Concomitant]
     Active Substance: BUMETANIDE
  6. CALCITRIOL [Concomitant]
     Active Substance: CALCITRIOL
  7. CITALOPRAM [Concomitant]
     Active Substance: CITALOPRAM
  8. CYANOCOBALAMIN [Concomitant]
     Active Substance: CYANOCOBALAMIN
  9. DIPHENHYDRAMINE HYDROCHLORIDE [Concomitant]
     Active Substance: DIPHENHYDRAMINE HYDROCHLORIDE
  10. DULOXETINE [Concomitant]
     Active Substance: DULOXETINE
  11. EPINEPHRINE [Concomitant]
     Active Substance: EPINEPHRINE

REACTIONS (4)
  - Dyspnoea [None]
  - Therapy non-responder [None]
  - Oxygen saturation decreased [None]
  - Thrombosis [None]

NARRATIVE: CASE EVENT DATE: 20241020
